FAERS Safety Report 10071419 (Version 1)
Quarter: 2014Q2

REPORT INFORMATION
  Report Type: Spontaneous
  Country: US (occurrence: US)
  Receive Date: 20140410
  Receipt Date: 20140410
  Transmission Date: 20141212
  Serious: No
  Sender: FDA-Public Use
  Company Number: US-ENDO PHARMACEUTICALS INC.-PRIM20130008

PATIENT
  Age: 74 Year
  Sex: Female

DRUGS (1)
  1. PRIMIDONE TABLETS 50MG [Suspect]
     Indication: TREMOR
     Route: 048
     Dates: start: 20131201, end: 20131210

REACTIONS (5)
  - Lip swelling [Unknown]
  - Chapped lips [Unknown]
  - Lip pain [Unknown]
  - Rash erythematous [Recovering/Resolving]
  - Pruritus generalised [Recovering/Resolving]
